FAERS Safety Report 15943178 (Version 5)
Quarter: 2019Q3

REPORT INFORMATION
  Report Type: Spontaneous
  Country: US (occurrence: US)
  Receive Date: 20190210
  Receipt Date: 20190821
  Transmission Date: 20191004
  Serious: Yes (Hospitalization, Disabling, Other)
  Sender: FDA-Public Use
  Company Number: US-ASTRAZENECA-2019SE10709

PATIENT
  Age: 44 Year
  Sex: Male

DRUGS (14)
  1. HUMULIN NOS [Concomitant]
     Active Substance: INSULIN HUMAN
  2. TYLENOL [Concomitant]
     Active Substance: ACETAMINOPHEN
  3. NORVASC [Concomitant]
     Active Substance: AMLODIPINE BESYLATE
  4. CELEXA [Concomitant]
     Active Substance: CITALOPRAM HYDROBROMIDE
  5. PRILOSEC [Suspect]
     Active Substance: OMEPRAZOLE MAGNESIUM
     Indication: DYSPEPSIA
     Route: 048
     Dates: start: 2012, end: 2015
  6. TYLENOL PM [Concomitant]
     Active Substance: ACETAMINOPHEN\DIPHENHYDRAMINE
     Dosage: AS NEEDED
     Route: 048
     Dates: start: 20150304
  7. SIROLIMUS. [Concomitant]
     Active Substance: SIROLIMUS
     Dosage: AS NEEDED
     Route: 048
     Dates: start: 20150304
  8. LASIX [Concomitant]
     Active Substance: FUROSEMIDE
  9. NEXIUM [Suspect]
     Active Substance: ESOMEPRAZOLE MAGNESIUM
     Indication: DYSPEPSIA
     Route: 048
  10. NEXIUM [Suspect]
     Active Substance: ESOMEPRAZOLE MAGNESIUM
     Indication: DYSPEPSIA
     Route: 048
     Dates: start: 2012, end: 2015
  11. TACROLIMUS. [Concomitant]
     Active Substance: TACROLIMUS
     Indication: BLOOD PRESSURE MEASUREMENT
     Route: 048
  12. NEXIUM [Suspect]
     Active Substance: ESOMEPRAZOLE MAGNESIUM
     Indication: DYSPEPSIA
     Route: 048
     Dates: start: 19950101
  13. PRILOSEC OTC [Suspect]
     Active Substance: OMEPRAZOLE MAGNESIUM
     Route: 048
     Dates: start: 19950101
  14. CLONIDINE. [Concomitant]
     Active Substance: CLONIDINE
     Route: 048

REACTIONS (6)
  - Renal failure [Unknown]
  - Renal injury [Unknown]
  - Nephrogenic anaemia [Unknown]
  - Rebound acid hypersecretion [Unknown]
  - End stage renal disease [Not Recovered/Not Resolved]
  - Acute kidney injury [Unknown]

NARRATIVE: CASE EVENT DATE: 2015
